FAERS Safety Report 24245470 (Version 3)
Quarter: 2024Q4

REPORT INFORMATION
  Report Type: Spontaneous
  Country: DE (occurrence: DE)
  Receive Date: 20240824
  Receipt Date: 20241216
  Transmission Date: 20250115
  Serious: Yes (Hospitalization)
  Sender: JOHNSON AND JOHNSON
  Company Number: DE-JNJFOC-20240844520

PATIENT
  Age: 40 Year
  Sex: Male
  Weight: 110 kg

DRUGS (4)
  1. TREMFYA [Suspect]
     Active Substance: GUSELKUMAB
     Indication: Psoriasis
     Route: 058
  2. TREMFYA [Suspect]
     Active Substance: GUSELKUMAB
     Indication: Psoriasis
     Route: 058
     Dates: start: 20240617, end: 20240813
  3. BETAGALEN [Concomitant]
     Indication: Psoriasis
     Dates: start: 20240711
  4. GLYCERIN\MINERAL OIL\PETROLATUM [Concomitant]
     Active Substance: GLYCERIN\MINERAL OIL\PETROLATUM
     Dates: start: 20240618

REACTIONS (1)
  - Erysipelas [Recovered/Resolved]

NARRATIVE: CASE EVENT DATE: 20240620
